FAERS Safety Report 7956433-X (Version None)
Quarter: 2011Q4

REPORT INFORMATION
  Report Type: 
  Country: None (occurrence: None)
  Receive Date: 20111205
  Receipt Date: 20111123
  Transmission Date: 20120403
  Serious: Yes (Hospitalization)
  Sender: FDA-Public Use
  Company Number: US-UCBSA-046553

PATIENT
  Age: 29 Year
  Sex: Female
  Weight: 100 kg

DRUGS (5)
  1. PREDNISONE TAB [Concomitant]
     Indication: CROHN'S DISEASE
  2. LANTUS [Concomitant]
     Indication: DIABETES MELLITUS
     Dosage: QD
     Route: 058
     Dates: start: 20110507
  3. HYDROCODONE BITARTRATE AND ACETAMINOPHEN [Concomitant]
     Dosage: 10/325 MG
     Route: 048
     Dates: start: 20110415
  4. CIMZIA [Suspect]
     Indication: CROHN'S DISEASE
     Route: 058
     Dates: start: 20100402
  5. BENADRYL [Concomitant]
     Indication: ABDOMINAL PAIN
     Route: 048
     Dates: start: 20110507

REACTIONS (3)
  - ULCER [None]
  - MYOSITIS [None]
  - RASH [None]
